FAERS Safety Report 6096423-8 (Version None)
Quarter: 2009Q1

REPORT INFORMATION
  Report Type: 
  Country: None (occurrence: None)
  Receive Date: 20090227
  Receipt Date: 20081216
  Transmission Date: 20090719
  Serious: No
  Sender: FDA-Public Use
  Company Number: A0760450A

PATIENT
  Age: 47 Year
  Sex: Female

DRUGS (2)
  1. LAMICTAL [Suspect]
     Indication: RASH
     Dosage: 25MG ALTERNATE DAYS
     Route: 048
     Dates: start: 20081119, end: 20081212
  2. VIVELLE [Concomitant]
     Indication: HORMONE REPLACEMENT THERAPY
     Route: 062

REACTIONS (5)
  - EYELID OEDEMA [None]
  - LYMPH NODE PAIN [None]
  - LYMPHADENOPATHY [None]
  - SKIN WARM [None]
  - SWELLING FACE [None]
